FAERS Safety Report 9106890 (Version 1)
Quarter: 2013Q1

REPORT INFORMATION
  Report Type: Spontaneous
  Country: US (occurrence: US)
  Receive Date: 20130221
  Receipt Date: 20130221
  Transmission Date: 20140127
  Serious: Yes (Hospitalization, Other)
  Sender: FDA-Public Use
  Company Number: US-SANOFI-AVENTIS-2013SA014750

PATIENT
  Age: 48 Year
  Sex: Male

DRUGS (5)
  1. LASIX [Suspect]
     Indication: BLOOD PRESSURE
  2. INTERFERON BETA [Suspect]
     Indication: MULTIPLE SCLEROSIS
     Route: 058
     Dates: start: 20120627
  3. FAMPRIDINE [Suspect]
     Indication: PRODUCT USED FOR UNKNOWN INDICATION
  4. SPIRONOLACTONE [Suspect]
     Indication: BLOOD PRESSURE
  5. ANALGESICS [Concomitant]
     Indication: BACK PAIN

REACTIONS (4)
  - Loss of consciousness [Unknown]
  - Fall [Unknown]
  - Renal failure [Recovering/Resolving]
  - Blood pressure decreased [Unknown]
